FAERS Safety Report 6472802-1 (Version None)
Quarter: 2009Q4

REPORT INFORMATION
  Report Type: 
  Country: None (occurrence: None)
  Receive Date: 20091203
  Receipt Date: 20090714
  Transmission Date: 20100525
  Serious: No
  Sender: FDA-Public Use
  Company Number: US-AMGEN-KDL324232

PATIENT
  Sex: Male

DRUGS (14)
  1. ENBREL [Suspect]
     Indication: RHEUMATOID ARTHRITIS
     Route: 058
     Dates: start: 20080720
  2. METHOTREXATE [Concomitant]
     Route: 048
  3. RANITIDINE [Concomitant]
  4. PLAQUENIL [Concomitant]
  5. OMEPRAZOLE [Concomitant]
  6. FOLIC ACID [Concomitant]
  7. CLONAZEPAM [Concomitant]
  8. LISINOPRIL [Concomitant]
  9. ALEVE [Concomitant]
  10. ASCORBIC ACID [Concomitant]
  11. MULTI-VITAMINS [Concomitant]
  12. MAGNESIUM [Concomitant]
  13. CALCIUM [Concomitant]
  14. OSTEOBIFLEX [Concomitant]

REACTIONS (2)
  - ANIMAL SCRATCH [None]
  - RHEUMATOID NODULE [None]
